FAERS Safety Report 8889865 (Version 2)
Quarter: 2012Q4

REPORT INFORMATION
  Report Type: 
  Country: US (occurrence: US)
  Receive Date: 20121107
  Receipt Date: 20121123
  Transmission Date: 20130627
  Serious: No
  Sender: FDA-Public Use
  Company Number: US-PFIZER INC-2012269495

PATIENT
  Sex: Female
  Weight: 72.56 kg

DRUGS (3)
  1. PREMPRO [Suspect]
     Indication: MENOPAUSE
     Dosage: 0.625/2.5 mg, daily
     Dates: end: 201208
  2. PREMPRO [Suspect]
     Indication: HOT FLUSHES
  3. ATENOLOL [Concomitant]
     Indication: HEARTBEATS INCREASED
     Dosage: 25 mg, 1x/day

REACTIONS (2)
  - Headache [Recovered/Resolved]
  - Drug ineffective [Not Recovered/Not Resolved]
